FAERS Safety Report 8242128-4 (Version None)
Quarter: 2012Q1

REPORT INFORMATION
  Report Type: 
  Country: None (occurrence: None)
  Receive Date: 20120314
  Receipt Date: 20100514
  Transmission Date: 20120608
  Serious: No
  Sender: FDA-Public Use
  Company Number: PHHY2010US31741

PATIENT
  Age: 51 Year
  Sex: Male

DRUGS (1)
  1. FANAPT [Suspect]

REACTIONS (1)
  - VISUAL BRIGHTNESS [None]
